FAERS Safety Report 16356871 (Version 2)
Quarter: 2019Q3

REPORT INFORMATION
  Report Type: Spontaneous
  Country: US (occurrence: US)
  Receive Date: 20190527
  Receipt Date: 20190711
  Transmission Date: 20191004
  Serious: Yes (Hospitalization, Other)
  Sender: FDA-Public Use
  Company Number: US-GLAXOSMITHKLINE-US2019AMR092949

PATIENT
  Age: 37 Year
  Sex: Female

DRUGS (2)
  1. FLOLAN DILUENT PH 12 [Suspect]
     Active Substance: GLYCINE\MANNITOL\SODIUM CHLORIDE
     Indication: PULMONARY ARTERIAL HYPERTENSION
     Dosage: UNK
     Route: 042
     Dates: start: 20190412
  2. FLOLAN [Suspect]
     Active Substance: EPOPROSTENOL SODIUM
     Indication: PULMONARY ARTERIAL HYPERTENSION
     Dosage: 94 NG/KG/MIN, CO
     Route: 042
     Dates: start: 20190412

REACTIONS (3)
  - Ascites [Unknown]
  - Oedema peripheral [Unknown]
  - Transplant [Unknown]

NARRATIVE: CASE EVENT DATE: 20190429
